FAERS Safety Report 4324564-1 (Version None)
Quarter: 2004Q1

REPORT INFORMATION
  Report Type: 
  Country: None (occurrence: None)
  Receive Date: 20040323
  Receipt Date: 20040311
  Transmission Date: 20041129
  Serious: Yes (Hospitalization, Disabling)
  Sender: FDA-Public Use
  Company Number: 2004-FF-00183FF

PATIENT
  Age: 46 Year
  Sex: Male

DRUGS (4)
  1. VIRAMUNE [Suspect]
     Indication: HIV INFECTION
     Dosage: 400 MG (200 MG, 1 IN 12 HR) PO
     Route: 048
     Dates: start: 20000515
  2. INVIRASE [Concomitant]
  3. NORVIR (RITONAVIR) (UNK) [Concomitant]
  4. COMBIVIR (ZIDOVUDINE W/LAMIVUDINE) (TA) [Concomitant]

REACTIONS (3)
  - ARTHRALGIA [None]
  - FEMORAL NECK FRACTURE [None]
  - PATHOLOGICAL FRACTURE [None]
